FAERS Safety Report 5286362-4 (Version None)
Quarter: 2007Q1

REPORT INFORMATION
  Report Type: 
  Country: None (occurrence: None)
  Receive Date: 20070329
  Receipt Date: 20070313
  Transmission Date: 20070707
  Serious: Yes (Other)
  Sender: FDA-Public Use
  Company Number: B0462710A

PATIENT
  Age: 43 Year
  Sex: Female

DRUGS (6)
  1. AMOXIL [Suspect]
     Indication: DRUG USE FOR UNKNOWN INDICATION
  2. IBUPROFEN [Suspect]
     Indication: DRUG USE FOR UNKNOWN INDICATION
  3. LAMIVUDINE [Concomitant]
  4. NEVIRAPINE [Concomitant]
  5. ABACAVIR SULFATE [Concomitant]
  6. INTERFERON [Concomitant]

REACTIONS (5)
  - AGRANULOCYTOSIS [None]
  - ASTHENIA [None]
  - CHILLS [None]
  - NEUTROPENIA [None]
  - PYREXIA [None]
